FAERS Safety Report 9617170 (Version 1)
Quarter: 2013Q4

REPORT INFORMATION
  Report Type: Spontaneous
  Country: AU (occurrence: AU)
  Receive Date: 20131011
  Receipt Date: 20131011
  Transmission Date: 20140711
  Serious: Yes (Other)
  Sender: FDA-Public Use
  Company Number: AU-ABBVIE-13P-008-1156453-00

PATIENT
  Age: 80 Year
  Sex: Female

DRUGS (2)
  1. EPILIM [Suspect]
     Indication: PRODUCT USED FOR UNKNOWN INDICATION
  2. VALPROATE SODIUM [Suspect]
     Indication: PRODUCT USED FOR UNKNOWN INDICATION

REACTIONS (5)
  - Cognitive disorder [Unknown]
  - Blood test abnormal [Unknown]
  - Drug level increased [Unknown]
  - Tremor [Unknown]
  - Drug ineffective [Unknown]
